FAERS Safety Report 4971669-8 (Version None)
Quarter: 2006Q2

REPORT INFORMATION
  Report Type: 
  Country: None (occurrence: None)
  Receive Date: 20060407
  Receipt Date: 20060331
  Transmission Date: 20061013
  Serious: Yes (Death)
  Sender: FDA-Public Use
  Company Number: 163-21880-06020567

PATIENT
  Age: 72 Year
  Sex: Female

DRUGS (4)
  1. REVLIMID [Suspect]
     Indication: MYELODYSPLASTIC SYNDROME
     Dosage: 10 MG, DAILY, ORAL
     Route: 048
     Dates: start: 20060203, end: 20060201
  2. COUMADIN [Concomitant]
  3. EXJADE [Concomitant]
  4. SYNTHROID [Concomitant]

REACTIONS (2)
  - PULMONARY HYPERTENSION [None]
  - RESPIRATORY FAILURE [None]
